FAERS Safety Report 4669908-6 (Version None)
Quarter: 2005Q2

REPORT INFORMATION
  Report Type: 
  Country: None (occurrence: None)
  Receive Date: 20050520
  Receipt Date: 20050506
  Transmission Date: 20051028
  Serious: Yes (Hospitalization, Other)
  Sender: FDA-Public Use
  Company Number: 2005BI009184

PATIENT
  Age: 57 Year
  Sex: Female

DRUGS (1)
  1. AVONEX [Suspect]
     Indication: MULTIPLE SCLEROSIS
     Dosage: 30 UG; QW; IM
     Route: 030
     Dates: start: 20010504

REACTIONS (4)
  - CEREBROVASCULAR ACCIDENT [None]
  - DEHYDRATION [None]
  - HYPOACUSIS [None]
  - INCONTINENCE [None]
